FAERS Safety Report 24382226 (Version 1)
Quarter: 2024Q4

REPORT INFORMATION
  Report Type: Spontaneous
  Country: GB (occurrence: GB)
  Receive Date: 20241001
  Receipt Date: 20241001
  Transmission Date: 20250115
  Serious: Yes (Other)
  Sender: TEVA
  Company Number: GB-MHRA-TPP54855304C7519580YC1726490392301

PATIENT
  Age: 59 Year
  Sex: Male
  Weight: 100 kg

DRUGS (14)
  1. GABAPENTIN [Suspect]
     Active Substance: GABAPENTIN
     Indication: Ill-defined disorder
     Dosage: VARIABLE DOSE
     Route: 065
     Dates: start: 20240829
  2. RAMIPRIL [Concomitant]
     Active Substance: RAMIPRIL
     Indication: Ill-defined disorder
     Dates: start: 20240424
  3. ISOPHANE INSULIN [Concomitant]
     Active Substance: INSULIN NOS
     Indication: Ill-defined disorder
     Dosage: 63 UNIT
     Dates: start: 20240208
  4. KETOCONAZOLE [Concomitant]
     Active Substance: KETOCONAZOLE
     Indication: Ill-defined disorder
     Dosage: 1 APPLICATION
     Dates: start: 20230118
  5. DERMOL [Concomitant]
     Active Substance: BENZALKONIUM CHLORIDE\CHLORHEXIDINE HYDROCHLORIDE\ISOPROPYL MYRISTATE\PARAFFIN
     Indication: Ill-defined disorder
     Dosage: 1 APPLICATION
     Dates: start: 20240415
  6. METFORMIN [Concomitant]
     Active Substance: METFORMIN HYDROCHLORIDE
     Indication: Ill-defined disorder
     Dates: start: 20240424
  7. DEXTROSE [Concomitant]
     Active Substance: DEXTROSE MONOHYDRATE
     Indication: Ill-defined disorder
     Dosage: 4-5 TABLET
     Dates: start: 20231129
  8. ORLISTAT [Concomitant]
     Active Substance: ORLISTAT
     Indication: Ill-defined disorder
     Dates: start: 20240424
  9. CHOLECALCIFEROL [Concomitant]
     Active Substance: CHOLECALCIFEROL
     Indication: Ill-defined disorder
     Dates: start: 20240514
  10. AMLODIPINE [Concomitant]
     Active Substance: AMLODIPINE BESYLATE
     Indication: Ill-defined disorder
     Dates: start: 20240611
  11. ATORVASTATIN [Concomitant]
     Active Substance: ATORVASTATIN
     Indication: Ill-defined disorder
     Dates: start: 20240514
  12. DICLOFENAC DIETHYLAMINE [Concomitant]
     Active Substance: DICLOFENAC DIETHYLAMINE
     Indication: Ill-defined disorder
     Dosage: 1 APPLICATION
     Dates: start: 20240115
  13. DULOXETINE [Concomitant]
     Active Substance: DULOXETINE
     Indication: Ill-defined disorder
     Dates: start: 20240321
  14. COCODAMOL [Concomitant]
     Active Substance: ACETAMINOPHEN\CODEINE PHOSPHATE
     Indication: Ill-defined disorder
     Dosage: 1-2 TABLET
     Dates: start: 20240621

REACTIONS (1)
  - Hallucinations, mixed [Recovered/Resolved]

NARRATIVE: CASE EVENT DATE: 20240829
